FAERS Safety Report 16000087 (Version 1)
Quarter: 2019Q1

REPORT INFORMATION
  Report Type: Spontaneous
  Country: NL (occurrence: NL)
  Receive Date: 20190225
  Receipt Date: 20190225
  Transmission Date: 20190418
  Serious: Yes (Death, Other)
  Sender: FDA-Public Use
  Company Number: NL-009507513-1901NLD010673

PATIENT
  Age: 78 Year
  Sex: Male

DRUGS (3)
  1. KEYTRUDA [Suspect]
     Active Substance: PEMBROLIZUMAB
     Indication: LUNG NEOPLASM MALIGNANT
     Dosage: DOSE: 200, EVERY 3 WEEKS
     Dates: start: 20190111, end: 20190111
  2. PEMTREX [Suspect]
     Active Substance: PEMETREXED DISODIUM
     Dosage: UNK
  3. CARBOPLATIN. [Suspect]
     Active Substance: CARBOPLATIN
     Dosage: UNK

REACTIONS (2)
  - Infection [Fatal]
  - Sepsis [Fatal]

NARRATIVE: CASE EVENT DATE: 201901
